FAERS Safety Report 7082791-7 (Version None)
Quarter: 2010Q4

REPORT INFORMATION
  Report Type: 
  Country: None (occurrence: None)
  Receive Date: 20101104
  Receipt Date: 20101026
  Transmission Date: 20110411
  Serious: Yes (Hospitalization)
  Sender: FDA-Public Use
  Company Number: FR-SANOFI-AVENTIS-2010SA065114

PATIENT
  Age: 64 Year
  Sex: Male

DRUGS (8)
  1. LOVENOX [Suspect]
     Indication: PULMONARY EMBOLISM
     Route: 058
     Dates: start: 20100920, end: 20100924
  2. IBUPROFEN [Suspect]
     Route: 048
     Dates: start: 20100901, end: 20100924
  3. AVONEX [Concomitant]
     Route: 051
  4. LOSARTAN [Concomitant]
     Route: 048
  5. ALFUZOSIN HCL [Concomitant]
     Route: 048
  6. ALDACTONE [Concomitant]
     Route: 048
  7. DICLOFENAC SODIUM [Concomitant]
     Route: 065
  8. ASPIRIN [Concomitant]
     Route: 048

REACTIONS (3)
  - GASTRIC ULCER [None]
  - SHOCK HAEMORRHAGIC [None]
  - ULCER HAEMORRHAGE [None]
